FAERS Safety Report 23576455 (Version 1)
Quarter: 2024Q1

REPORT INFORMATION
  Report Type: Spontaneous
  Country: US (occurrence: US)
  Receive Date: 20240228
  Receipt Date: 20240228
  Transmission Date: 20240410
  Serious: No
  Sender: FDA-Public Use
  Company Number: US-UPSHER-SMITH LABORATORIES, LLC-2023USL00359

PATIENT
  Sex: Female
  Weight: 60.317 kg

DRUGS (5)
  1. MYORISAN [Suspect]
     Active Substance: ISOTRETINOIN
     Indication: Acne
     Dosage: 30 MG
     Route: 048
     Dates: start: 20220922, end: 20221024
  2. MYORISAN [Suspect]
     Active Substance: ISOTRETINOIN
     Dosage: 60 MG
     Route: 048
     Dates: start: 20221201, end: 20230111
  3. MYORISAN [Suspect]
     Active Substance: ISOTRETINOIN
     Indication: Acne
     Dosage: 40 MG
     Route: 048
     Dates: start: 20221025, end: 20221130
  4. MYORISAN [Suspect]
     Active Substance: ISOTRETINOIN
     Dosage: 80 MG
     Route: 048
     Dates: start: 20230112, end: 202303
  5. TRI-ESTARYLLA [Concomitant]
     Active Substance: ETHINYL ESTRADIOL\NORGESTIMATE
     Route: 048

REACTIONS (1)
  - Rash [Recovered/Resolved]
